FAERS Safety Report 16197162 (Version 2)
Quarter: 2019Q2

REPORT INFORMATION
  Report Type: Spontaneous
  Country: US (occurrence: US)
  Receive Date: 20190415
  Receipt Date: 20190507
  Transmission Date: 20190711
  Serious: No
  Sender: FDA-Public Use
  Company Number: US-PFIZER INC-2019156710

PATIENT
  Age: 24 Year
  Sex: Male

DRUGS (1)
  1. EUCRISA [Suspect]
     Active Substance: CRISABOROLE
     Indication: RASH
     Dosage: UNK, TWICE A DAY
     Route: 061
     Dates: start: 201801

REACTIONS (2)
  - Therapeutic product effect incomplete [Unknown]
  - Application site pain [Unknown]
